FAERS Safety Report 19742325 (Version 1)
Quarter: 2021Q3

REPORT INFORMATION
  Report Type: Spontaneous
  Country: US (occurrence: US)
  Receive Date: 20210823
  Receipt Date: 20210823
  Transmission Date: 20211014
  Serious: Yes (Hospitalization)
  Sender: FDA-Public Use
  Company Number: None

PATIENT
  Age: 66 Year
  Sex: Female

DRUGS (1)
  1. AVONEX PEN [Suspect]
     Active Substance: INTERFERON BETA-1A
     Indication: MULTIPLE SCLEROSIS
     Dosage: ?          OTHER STRENGTH: 30MCG/0.5ML;OTHER DOSE: 30MCG/0.5ML;?
     Route: 030
     Dates: start: 20190308

REACTIONS (1)
  - Haematochezia [None]

NARRATIVE: CASE EVENT DATE: 20210719
